FAERS Safety Report 16628282 (Version 4)
Quarter: 2019Q3

REPORT INFORMATION
  Report Type: Spontaneous
  Country: CZ (occurrence: CZ)
  Receive Date: 20190724
  Receipt Date: 20190828
  Transmission Date: 20191004
  Serious: Yes (Hospitalization, Other)
  Sender: FDA-Public Use
  Company Number: PHHY2019CZ168330

PATIENT
  Age: 54 Year
  Sex: Female

DRUGS (19)
  1. TELMISARTAN. [Suspect]
     Active Substance: TELMISARTAN
     Indication: HYPERTENSION
     Dosage: 80 MG, QD
     Route: 048
  2. BETAXOLOL. [Suspect]
     Active Substance: BETAXOLOL
     Indication: HYPERTENSION
     Dosage: 20 MG, QD (1/4 TABLET)
     Route: 048
  3. METFORMIN [Concomitant]
     Active Substance: METFORMIN HYDROCHLORIDE
     Indication: HYPERCHOLESTEROLAEMIA
     Route: 065
  4. BETAXOLOL. [Suspect]
     Active Substance: BETAXOLOL
     Dosage: 20 MG, QD, 1/4 TABLET
     Route: 048
  5. AMLODIPINE [Suspect]
     Active Substance: AMLODIPINE BESYLATE
     Dosage: 80 MG, QD
     Route: 048
  6. MICARDIS [Suspect]
     Active Substance: TELMISARTAN
     Indication: HYPERTENSION
     Dosage: 80MG, QD
     Route: 048
     Dates: start: 2014
  7. MOXONIDIN [Suspect]
     Active Substance: MOXONIDINE
     Indication: HYPERTENSION
     Dosage: 0.4 MG, QD (1 TABLET EVENING)
     Route: 048
  8. URAPIDIL [Suspect]
     Active Substance: URAPIDIL
     Indication: HYPERTENSION
     Dosage: 30 MG, BID (1 TABLET MORNING, 1 TABLET EVENING)
     Route: 048
  9. MICARDIS PLUS [Suspect]
     Active Substance: HYDROCHLOROTHIAZIDE\TELMISARTAN
     Indication: HYPERTENSION
     Dosage: 1 DF, UNK (80/12.5 MG)
     Route: 048
  10. TELMISARTAN+HYDROCHLOROTHIAZIDE [Suspect]
     Active Substance: HYDROCHLOROTHIAZIDE\TELMISARTAN
     Indication: HYPERTENSION
     Dosage: 1 DF, QD (80/12.5 MG, 1 TABLET MORNING)
     Route: 048
  11. TWYNSTA [Suspect]
     Active Substance: AMLODIPINE BESYLATE\TELMISARTAN
     Dosage: 80 MG, QD
     Route: 048
  12. METFORMIN [Concomitant]
     Active Substance: METFORMIN HYDROCHLORIDE
     Indication: DIABETES MELLITUS
     Dosage: UNK
     Route: 065
  13. BETAXOLOL. [Suspect]
     Active Substance: BETAXOLOL
     Dosage: 5 MG, UNK
     Route: 048
  14. AMLODIPINE [Suspect]
     Active Substance: AMLODIPINE BESYLATE
     Indication: HYPERTENSION
     Dosage: 10 MG, QD
     Route: 048
  15. MICARDIS PLUS [Suspect]
     Active Substance: HYDROCHLOROTHIAZIDE\TELMISARTAN
     Dosage: 80/12.5 MG, 1 TABLET MORNING
     Route: 048
  16. BETAXOLOL. [Suspect]
     Active Substance: BETAXOLOL
     Dosage: 20 MG, QD, 1/4 TABLET
     Route: 048
  17. TWYNSTA [Suspect]
     Active Substance: AMLODIPINE BESYLATE\TELMISARTAN
     Indication: HYPERTENSION
     Dosage: 10 MG, QD
     Route: 048
  18. METFORMIN [Concomitant]
     Active Substance: METFORMIN HYDROCHLORIDE
  19. MOXONIDIN [Suspect]
     Active Substance: MOXONIDINE
     Dosage: 0.4 MG, QD, 1 TABLET EVENING
     Route: 048

REACTIONS (6)
  - Ischaemic stroke [Unknown]
  - Hypertensive crisis [Recovered/Resolved]
  - Cerebrovascular disorder [Unknown]
  - Ischaemic stroke [Recovered/Resolved]
  - Drug ineffective [Unknown]
  - Hypertension [Recovered/Resolved]

NARRATIVE: CASE EVENT DATE: 2015
